FAERS Safety Report 19009754 (Version 2)
Quarter: 2021Q1

REPORT INFORMATION
  Report Type: Spontaneous
  Country: CA (occurrence: CA)
  Receive Date: 20210316
  Receipt Date: 20210331
  Transmission Date: 20210420
  Serious: Yes (Other)
  Sender: FDA-Public Use
  Company Number: CA-LUPIN PHARMACEUTICALS INC.-2021-03155

PATIENT
  Age: 66 Year
  Sex: Female

DRUGS (7)
  1. ACETAMINOPHEN. [Concomitant]
     Active Substance: ACETAMINOPHEN
     Indication: PAIN
     Dosage: UNK UNK, PRN
     Route: 048
  2. FENTANYL. [Suspect]
     Active Substance: FENTANYL
     Indication: PAIN
     Dosage: 150 GRAM EVERY 48 HOURS
     Route: 061
  3. NAPROXEN. [Concomitant]
     Active Substance: NAPROXEN
     Indication: PAIN
     Dosage: 200 MILLIGRAM, BID
     Route: 048
  4. GABAPENTIN. [Concomitant]
     Active Substance: GABAPENTIN
     Indication: PAIN
     Dosage: 1200 MILLIGRAM, TID
     Route: 048
  5. MORPHINE [Suspect]
     Active Substance: MORPHINE
     Indication: PAIN
     Dosage: 10 MILLIGRAM, PRN, WHICH SHE TAKES UP TO 5 TIMES A DAY IMMEDIATE RELEASED
     Route: 048
  6. DICLOFENAC [Concomitant]
     Active Substance: DICLOFENAC
     Indication: PAIN
     Dosage: UNK, PRN
     Route: 061
  7. FENTANYL. [Suspect]
     Active Substance: FENTANYL
     Dosage: 25 MILLIGRAM, EVERY 72 HOURS
     Route: 061

REACTIONS (3)
  - Drug use disorder [Recovering/Resolving]
  - Drug withdrawal syndrome [Recovering/Resolving]
  - Drug abuse [Unknown]
